FAERS Safety Report 13716374 (Version 1)
Quarter: 2017Q3

REPORT INFORMATION
  Report Type: Report from Study
  Country: CN (occurrence: CN)
  Receive Date: 20170705
  Receipt Date: 20170705
  Transmission Date: 20171127
  Serious: Yes (Hospitalization)
  Sender: FDA-Public Use
  Company Number: CN-ROCHE-1958712

PATIENT
  Age: 72 Year
  Sex: Male
  Weight: 55 kg

DRUGS (2)
  1. HERCEPTIN [Suspect]
     Active Substance: TRASTUZUMAB
     Indication: GASTRIC CANCER
     Route: 042
     Dates: start: 20170615, end: 20170701
  2. IRINOTECAN [Suspect]
     Active Substance: IRINOTECAN
     Indication: GASTRIC CANCER
     Route: 042
     Dates: start: 20170619, end: 20170701

REACTIONS (1)
  - Intestinal obstruction [Not Recovered/Not Resolved]

NARRATIVE: CASE EVENT DATE: 20170701
